FAERS Safety Report 5327770-2 (Version None)
Quarter: 2007Q2

REPORT INFORMATION
  Report Type: 
  Country: None (occurrence: None)
  Receive Date: 20070517
  Receipt Date: 20070511
  Transmission Date: 20071010
  Serious: Yes (Hospitalization)
  Sender: FDA-Public Use
  Company Number: PHEH2007US07322

PATIENT
  Sex: Male

DRUGS (1)
  1. ZELNORM [Suspect]
     Indication: IRRITABLE BOWEL SYNDROME
     Dosage: 6 MG, BID
     Route: 048
     Dates: start: 20060901, end: 20070401

REACTIONS (4)
  - ABDOMINAL DISTENSION [None]
  - CHOLECYSTECTOMY [None]
  - GALLBLADDER DISORDER [None]
  - PANCREATITIS [None]
